FAERS Safety Report 5238284-2 (Version None)
Quarter: 2007Q1

REPORT INFORMATION
  Report Type: 
  Country: None (occurrence: None)
  Receive Date: 20070209
  Receipt Date: 20070209
  Transmission Date: 20070707
  Serious: Yes (Life-Threatening, Hospitalization)
  Sender: FDA-Public Use
  Company Number: None

PATIENT
  Sex: Male
  Weight: 93 kg

DRUGS (9)
  1. HALDOL [Suspect]
     Indication: SCHIZOPHRENIA
     Dosage: 125MG QMONTH IM
     Route: 030
     Dates: start: 20060823, end: 20061101
  2. LACTOBACILLUS [Concomitant]
  3. RIFAMPIN [Concomitant]
  4. SEPTRA DS [Concomitant]
  5. TRIHEXYPHENIDYL HCL [Concomitant]
  6. CELEXA [Concomitant]
  7. HALOPERIDOL DECANOATE [Concomitant]
  8. BENADRYL [Concomitant]
  9. OMEGA-3 [Concomitant]

REACTIONS (4)
  - CELLULITIS [None]
  - NEUROLEPTIC MALIGNANT SYNDROME [None]
  - SLUGGISHNESS [None]
  - STAPHYLOCOCCAL INFECTION [None]
